FAERS Safety Report 18462697 (Version 1)
Quarter: 2020Q4

REPORT INFORMATION
  Report Type: Spontaneous
  Country: US (occurrence: US)
  Receive Date: 20201104
  Receipt Date: 20201104
  Transmission Date: 20210114
  Serious: Yes (Death)
  Sender: FDA-Public Use
  Company Number: US-PFIZER INC-2020425822

PATIENT
  Age: 75 Year
  Sex: Male

DRUGS (3)
  1. SUTENT [Suspect]
     Active Substance: SUNITINIB MALATE
     Indication: PROSTATE CANCER
     Dosage: UNK
  2. SUTENT [Suspect]
     Active Substance: SUNITINIB MALATE
     Indication: COLON CANCER
  3. SUTENT [Suspect]
     Active Substance: SUNITINIB MALATE
     Indication: RENAL CANCER

REACTIONS (2)
  - Death [Fatal]
  - Weight decreased [Unknown]

NARRATIVE: CASE EVENT DATE: 20201026
